FAERS Safety Report 16132420 (Version 1)
Quarter: 2019Q1

REPORT INFORMATION
  Report Type: Report from Study
  Country: DE (occurrence: DE)
  Receive Date: 20190329
  Receipt Date: 20190329
  Transmission Date: 20190418
  Serious: Yes (Hospitalization, Other)
  Sender: FDA-Public Use
  Company Number: DE-TEVA-2019-DE-1008846

PATIENT
  Age: 0 Year
  Sex: Female

DRUGS (1)
  1. COPAXONE [Suspect]
     Active Substance: GLATIRAMER ACETATE
     Indication: MULTIPLE SCLEROSIS
     Dosage: 20 MILLIGRAM DAILY;
     Route: 064
     Dates: start: 20140701, end: 201802

REACTIONS (4)
  - Foetal exposure during pregnancy [Unknown]
  - Normal newborn [Unknown]
  - Premature baby [Recovered/Resolved]
  - Foetal monitoring abnormal [Recovered/Resolved]

NARRATIVE: CASE EVENT DATE: 20171220
